FAERS Safety Report 12666147 (Version 1)
Quarter: 2016Q3

REPORT INFORMATION
  Report Type: Spontaneous
  Country: US (occurrence: US)
  Receive Date: 20160818
  Receipt Date: 20160818
  Transmission Date: 20161109
  Serious: No
  Sender: FDA-Public Use
  Company Number: US-JAZZ-2016-US-005675

PATIENT
  Sex: Female

DRUGS (15)
  1. EFFEXOR [Concomitant]
     Active Substance: VENLAFAXINE HYDROCHLORIDE
  2. FOLBEE PLUS [Concomitant]
  3. WHITE WILLOW BARK [Concomitant]
  4. XYREM [Suspect]
     Active Substance: SODIUM OXYBATE
     Dosage: 4.5 G, BID
     Route: 048
     Dates: start: 201512
  5. ULTRAZYME [Concomitant]
  6. ACIDOPHILUS [Concomitant]
     Active Substance: LACTOBACILLUS ACIDOPHILUS
  7. GARLIC. [Concomitant]
     Active Substance: GARLIC
  8. COD LIVER OIL [Concomitant]
     Active Substance: COD LIVER OIL
  9. ANDROGRAPHIS [Concomitant]
  10. XYREM [Suspect]
     Active Substance: SODIUM OXYBATE
     Indication: NARCOLEPSY
     Dosage: 2.25 G, BID
     Route: 048
     Dates: start: 201510, end: 201510
  11. POTASSIUM 99 [Concomitant]
  12. XYREM [Suspect]
     Active Substance: SODIUM OXYBATE
     Indication: CATAPLEXY
     Dosage: DOSE ADJUSTMENTS
     Route: 048
  13. ADRENAL [Concomitant]
     Active Substance: EPINEPHRINE
  14. CRANACTIN [Concomitant]
     Active Substance: DIETARY SUPPLEMENT
  15. MULTIVITAMINS [Concomitant]
     Active Substance: VITAMINS

REACTIONS (5)
  - Eye pain [Unknown]
  - Dry eye [Unknown]
  - Visual impairment [Unknown]
  - Eye disorder [Unknown]
  - Vision blurred [Unknown]
